FAERS Safety Report 8881809 (Version 1)
Quarter: 2012Q4

REPORT INFORMATION
  Report Type: 
  Country: US (occurrence: US)
  Receive Date: 20121101
  Receipt Date: 20121101
  Transmission Date: 20130627
  Serious: No
  Sender: FDA-Public Use
  Company Number: US-PFIZER INC-2012269484

PATIENT
  Age: 77 Year
  Sex: Female
  Weight: 56.69 kg

DRUGS (6)
  1. NEURONTIN [Suspect]
     Indication: NEURALGIA
     Dosage: 100 mg, 3x/day
     Dates: start: 20121010, end: 20121026
  2. TEGRETOL [Suspect]
     Indication: TRIGEMINAL NEURALGIA
     Dosage: 50 mg, alternate day
     Dates: start: 2006
  3. TEGRETOL [Suspect]
     Dosage: 100 mg, 1x/day
     Dates: start: 2006
  4. ALBUTEROL [Concomitant]
     Indication: CHRONIC OBSTRUCTIVE PULMONARY DISEASE
     Dosage: 2 puffs, 2x/day
  5. ALBUTEROL [Concomitant]
     Indication: SHORTNESS OF BREATH
  6. ACETYLSALICYLIC ACID [Concomitant]
     Indication: PERIPHERAL ARTERIAL OCCLUSIVE DISEASE
     Dosage: 81 mg, UNK

REACTIONS (1)
  - Malaise [Unknown]
